FAERS Safety Report 5694087-6 (Version None)
Quarter: 2008Q2

REPORT INFORMATION
  Report Type: 
  Country: None (occurrence: None)
  Receive Date: 20080402
  Receipt Date: 20080326
  Transmission Date: 20081010
  Serious: Yes (Hospitalization, Other)
  Sender: FDA-Public Use
  Company Number: 2008SP005968

PATIENT
  Age: 51 Year
  Sex: Female
  Weight: 107.0489 kg

DRUGS (13)
  1. PEG-INTRON [Suspect]
     Indication: HEPATITIS C
     Dosage: 180 MCG; QW; SC
     Route: 058
     Dates: start: 20080305, end: 20080319
  2. REBETOL [Suspect]
     Indication: HEPATITIS C
     Dosage: 1400 MG; PO
     Route: 048
     Dates: start: 20080305, end: 20080321
  3. BLINDED PEGINTERFERON ALFA-2B (S-P) [Suspect]
     Indication: DRUG USE FOR UNKNOWN INDICATION
     Dosage: 54.5 MG; IV
     Route: 042
     Dates: start: 20080305
  4. AVALIDE [Concomitant]
  5. VICOPROFEN [Concomitant]
  6. CYMBALTA [Concomitant]
  7. PREMARIN [Concomitant]
  8. FOLIC ACID [Concomitant]
  9. FISH OIL [Concomitant]
  10. VITAMIN B-12 [Concomitant]
  11. FLONASE [Concomitant]
  12. AUGMENTIN '125' [Concomitant]
  13. IMODIUM [Concomitant]

REACTIONS (3)
  - COMPRESSION FRACTURE [None]
  - LOSS OF CONSCIOUSNESS [None]
  - ROAD TRAFFIC ACCIDENT [None]
